FAERS Safety Report 4726325-8 (Version None)
Quarter: 2005Q3

REPORT INFORMATION
  Report Type: 
  Country: None (occurrence: None)
  Receive Date: 20050725
  Receipt Date: 20050713
  Transmission Date: 20060218
  Serious: Yes (Hospitalization, Other)
  Sender: FDA-Public Use
  Company Number: 2005083116

PATIENT
  Sex: Female

DRUGS (1)
  1. CELEBREX [Suspect]
     Indication: ILL-DEFINED DISORDER
     Dosage: 200 MG

REACTIONS (9)
  - ALOPECIA [None]
  - ARTHRITIS [None]
  - BLINDNESS UNILATERAL [None]
  - CARPAL TUNNEL SYNDROME [None]
  - CATARACT OPERATION [None]
  - DEHYDRATION [None]
  - GLAUCOMA [None]
  - LIMB INJURY [None]
  - OPEN WOUND [None]
